FAERS Safety Report 23279473 (Version 1)
Quarter: 2023Q4

REPORT INFORMATION
  Report Type: Spontaneous
  Country: FR (occurrence: FR)
  Receive Date: 20231210
  Receipt Date: 20231210
  Transmission Date: 20240110
  Serious: Yes (Life-Threatening, Other)
  Sender: FDA-Public Use
  Company Number: FR-AFSSAPS-NY2023001668

PATIENT
  Age: 38 Year
  Sex: Female

DRUGS (9)
  1. AMOXICILLIN [Suspect]
     Active Substance: AMOXICILLIN
     Indication: Prophylaxis
     Dosage: 1 DOSAGE FORM, 1 TOTAL
     Route: 048
     Dates: start: 20230803
  2. BETADINE [Concomitant]
     Active Substance: POVIDONE-IODINE
     Indication: Wisdom teeth removal
     Dosage: 1 DOSAGE FORM, ONCE A DAY
     Route: 002
     Dates: start: 20230803
  3. KETAMINE [Concomitant]
     Active Substance: KETAMINE
     Indication: Wisdom teeth removal
     Dosage: 1 DOSAGE FORM
     Route: 042
     Dates: start: 20230803
  4. KETAMINE [Concomitant]
     Active Substance: KETAMINE
     Indication: General anaesthesia
  5. LEVOTHYROXINE [Concomitant]
     Active Substance: LEVOTHYROXINE
     Indication: Hypothyroidism
     Dosage: 1 DOSAGE FORM
     Route: 048
  6. PROPOFOL [Concomitant]
     Active Substance: PROPOFOL
     Indication: Wisdom teeth removal
     Dosage: 1 DOSAGE FORM
     Route: 042
     Dates: start: 20230803
  7. PROPOFOL [Concomitant]
     Active Substance: PROPOFOL
     Indication: General anaesthesia
  8. SUFENTANIL [Concomitant]
     Active Substance: SUFENTANIL
     Indication: Wisdom teeth removal
     Dosage: 1 DOSAGE FORM
     Route: 042
     Dates: start: 20230803
  9. SUFENTANIL [Concomitant]
     Active Substance: SUFENTANIL
     Indication: General anaesthesia

REACTIONS (1)
  - Anaphylactic shock [Recovered/Resolved]

NARRATIVE: CASE EVENT DATE: 20230803
